FAERS Safety Report 6841380-7 (Version None)
Quarter: 2010Q3

REPORT INFORMATION
  Report Type: 
  Country: None (occurrence: None)
  Receive Date: 20100709
  Receipt Date: 20100706
  Transmission Date: 20110219
  Serious: Yes (Other)
  Sender: FDA-Public Use
  Company Number: CTI_01210_2010

PATIENT
  Age: 56 Year
  Sex: Male

DRUGS (3)
  1. ZYFLO CR [Suspect]
     Indication: PRODUCT USED FOR UNKNOWN INDICATION
     Dosage: (2 DF BID, DF), (1 DF BID, DF)
     Dates: start: 20100101
  2. ZYFLO CR [Suspect]
     Indication: PRODUCT USED FOR UNKNOWN INDICATION
     Dosage: (2 DF BID, DF), (1 DF BID, DF)
     Dates: start: 20100701
  3. ZOLOFT [Concomitant]

REACTIONS (1)
  - DEPRESSION [None]
